FAERS Safety Report 9929191 (Version 1)
Quarter: 2014Q1

REPORT INFORMATION
  Report Type: Spontaneous
  Country: US (occurrence: US)
  Receive Date: 20140227
  Receipt Date: 20140227
  Transmission Date: 20141002
  Serious: No
  Sender: FDA-Public Use
  Company Number: US-TEVA-461608USA

PATIENT
  Sex: Male

DRUGS (1)
  1. NUVIGIL [Suspect]
     Dates: end: 20140206

REACTIONS (3)
  - Dyskinesia [Unknown]
  - Movement disorder [Not Recovered/Not Resolved]
  - Glossodynia [Not Recovered/Not Resolved]
